FAERS Safety Report 4367748-9 (Version None)
Quarter: 2004Q2

REPORT INFORMATION
  Report Type: 
  Country: None (occurrence: None)
  Receive Date: 20040527
  Receipt Date: 20031023
  Transmission Date: 20050107
  Serious: Yes (Other)
  Sender: FDA-Public Use
  Company Number: 350183

PATIENT
  Sex: Male

DRUGS (1)
  1. LARIAM [Suspect]
     Indication: MALARIA PROPHYLAXIS
     Dosage: ORAL
     Route: 048
     Dates: start: 20011215, end: 20030615

REACTIONS (6)
  - ADVERSE EVENT [None]
  - CONVULSION [None]
  - DIZZINESS [None]
  - FATIGUE [None]
  - MUSCLE TWITCHING [None]
  - TREMOR [None]
